FAERS Safety Report 6783528-9 (Version None)
Quarter: 2010Q2

REPORT INFORMATION
  Report Type: 
  Country: None (occurrence: None)
  Receive Date: 20100622
  Receipt Date: 20100614
  Transmission Date: 20101027
  Serious: Yes (Hospitalization)
  Sender: FDA-Public Use
  Company Number: DE-SANOFI-AVENTIS-2010SA033952

PATIENT
  Age: 67 Year
  Sex: Female

DRUGS (14)
  1. DELIX [Suspect]
     Indication: DRUG USE FOR UNKNOWN INDICATION
     Route: 048
     Dates: end: 20100512
  2. LASIX [Suspect]
     Indication: DRUG USE FOR UNKNOWN INDICATION
     Route: 048
  3. SPIRONOLACTONE [Suspect]
     Indication: DRUG USE FOR UNKNOWN INDICATION
     Route: 048
  4. CONCOR [Suspect]
     Indication: DRUG USE FOR UNKNOWN INDICATION
     Route: 048
  5. RISPERDAL [Suspect]
     Indication: DRUG USE FOR UNKNOWN INDICATION
     Route: 048
     Dates: start: 20100420, end: 20100422
  6. RISPERDAL [Suspect]
     Route: 048
     Dates: start: 20100423
  7. MELPERONE [Suspect]
     Indication: DRUG USE FOR UNKNOWN INDICATION
     Route: 048
     Dates: start: 20100420, end: 20100502
  8. MELPERONE [Suspect]
     Route: 048
     Dates: start: 20100503, end: 20100511
  9. LORAZEPAM [Suspect]
     Indication: DRUG USE FOR UNKNOWN INDICATION
     Route: 048
     Dates: start: 02010419, end: 20100419
  10. LORAZEPAM [Suspect]
     Route: 048
     Dates: start: 20100422, end: 20100426
  11. LORAZEPAM [Suspect]
     Route: 048
     Dates: start: 20100427
  12. REMERGIL [Suspect]
     Indication: DRUG USE FOR UNKNOWN INDICATION
     Route: 048
     Dates: start: 20100506
  13. ACETYLSALICYLIC ACID [Concomitant]
     Indication: DRUG USE FOR UNKNOWN INDICATION
     Route: 048
  14. SIMVASTATIN [Concomitant]
     Indication: DRUG USE FOR UNKNOWN INDICATION
     Route: 048

REACTIONS (3)
  - DIZZINESS [None]
  - FALL [None]
  - HYPOTENSION [None]
